FAERS Safety Report 5520551-6 (Version None)
Quarter: 2007Q4

REPORT INFORMATION
  Report Type: 
  Country: None (occurrence: None)
  Receive Date: 20071119
  Receipt Date: 20071106
  Transmission Date: 20080405
  Serious: Yes (Other)
  Sender: FDA-Public Use
  Company Number: US-PFIZER INC-2007077437

PATIENT
  Sex: Female
  Weight: 109.8 kg

DRUGS (8)
  1. CHANTIX [Suspect]
     Indication: SMOKING CESSATION THERAPY
  2. HUMULIN N [Concomitant]
  3. HUMULIN 70/30 [Concomitant]
  4. CATAPRES [Concomitant]
  5. TOPROL-XL [Concomitant]
  6. DEMADEX [Concomitant]
  7. XOPENEX [Concomitant]
  8. ALL OTHER THERAPEUTIC PRODUCTS [Concomitant]

REACTIONS (2)
  - BLOOD GLUCOSE INCREASED [None]
  - BLOOD TEST ABNORMAL [None]
